FAERS Safety Report 5922907-6 (Version None)
Quarter: 2008Q4

REPORT INFORMATION
  Report Type: 
  Country: None (occurrence: None)
  Receive Date: 20081017
  Receipt Date: 20081014
  Transmission Date: 20090506
  Serious: Yes (Death, Other)
  Sender: FDA-Public Use
  Company Number: GB-ABBOTT-08P-167-0474837-00

PATIENT
  Sex: Female
  Weight: 80 kg

DRUGS (8)
  1. HUMIRA [Suspect]
     Indication: RHEUMATOID ARTHRITIS
     Route: 058
     Dates: start: 20060731, end: 20060814
  2. CELECOXIB [Concomitant]
     Indication: DRUG USE FOR UNKNOWN INDICATION
  3. ETIDRONATE DISODIUM [Concomitant]
     Indication: DRUG USE FOR UNKNOWN INDICATION
  4. MIXTARD HUMAN 70/30 [Concomitant]
     Indication: DRUG USE FOR UNKNOWN INDICATION
  5. ENALAPRIL MALEATE [Concomitant]
     Indication: DRUG USE FOR UNKNOWN INDICATION
  6. INDAPAMIDE [Concomitant]
     Indication: DRUG USE FOR UNKNOWN INDICATION
  7. QUININE SULFATE [Concomitant]
     Indication: DRUG USE FOR UNKNOWN INDICATION
  8. TRAMADOL HCL [Concomitant]
     Indication: DRUG USE FOR UNKNOWN INDICATION

REACTIONS (2)
  - METASTASES TO LIVER [None]
  - PANCREATIC CARCINOMA METASTATIC [None]
